FAERS Safety Report 6918573-3 (Version None)
Quarter: 2010Q3

REPORT INFORMATION
  Report Type: 
  Country: None (occurrence: None)
  Receive Date: 20100811
  Receipt Date: 20100802
  Transmission Date: 20110219
  Serious: Yes (Hospitalization)
  Sender: FDA-Public Use
  Company Number: FR-WYE-G06490010

PATIENT
  Sex: Female

DRUGS (12)
  1. EFFEXOR XR [Suspect]
     Indication: DEPRESSION
     Dosage: 1 DAILY INTAKE FOR ONE WEEK AND THEN 2 DAILY INTAKES
     Route: 048
     Dates: start: 20100205, end: 20100215
  2. KARDEGIC [Concomitant]
     Dosage: UNKNOWN
     Route: 048
  3. LOXEN [Concomitant]
     Dosage: UNKNOWN
  4. SELOKEN [Concomitant]
     Dosage: UNKNOWN
  5. DOLIPRANE [Concomitant]
     Dosage: UNKNOWN
     Dates: end: 20100215
  6. FLECAINIDE ACETATE [Concomitant]
     Dosage: UNKNOWN
  7. DIAMICRON [Concomitant]
     Dosage: UNKNOWN
  8. METFORMIN [Concomitant]
     Dosage: UNKNOWN
     Dates: end: 20100215
  9. TARDYFERON [Concomitant]
     Dosage: UNKNOWN
     Dates: end: 20100215
  10. SERESTA [Concomitant]
     Dosage: UNKNOWN
     Dates: end: 20100215
  11. MODURETIC 5-50 [Concomitant]
     Dosage: UNKNOWN
     Route: 048
     Dates: end: 20100215
  12. BUFLOMEDIL [Concomitant]
     Dosage: UNKNOWN
     Dates: end: 20100215

REACTIONS (8)
  - ASTHENIA [None]
  - DECREASED APPETITE [None]
  - DYSTHYMIC DISORDER [None]
  - GENERAL PHYSICAL HEALTH DETERIORATION [None]
  - HYPONATRAEMIA [None]
  - INSOMNIA [None]
  - NAUSEA [None]
  - WEIGHT DECREASED [None]
